FAERS Safety Report 4922113-8 (Version None)
Quarter: 2006Q1

REPORT INFORMATION
  Report Type: 
  Country: None (occurrence: None)
  Receive Date: 20060122
  Receipt Date: 20060122
  Transmission Date: 20060701
  Serious: No
  Sender: FDA-Public Use
  Company Number: None

PATIENT
  Age: 74 Year
  Sex: Male

DRUGS (11)
  1. HEPARIN [Suspect]
     Indication: THROMBOSIS PROPHYLAXIS
     Dosage: 25,000 UNITS IV
     Route: 042
     Dates: start: 20051111, end: 20051114
  2. ALBUTEROL IHL [Concomitant]
  3. COLESTIPOL HCL [Concomitant]
  4. EPOETIN 2 [Concomitant]
  5. FELODIPINE FE# [Concomitant]
  6. HYDRALAZINE [Concomitant]
  7. INSULIN [Concomitant]
  8. ISOSORBIDE DINSTATRATE [Concomitant]
  9. METOPROLOL [Concomitant]
  10. OMEPRAZOLE [Concomitant]
  11. SEVELAMER [Concomitant]

REACTIONS (3)
  - ANTIBODY TEST POSITIVE [None]
  - FALL [None]
  - INTERNATIONAL NORMALISED RATIO INCREASED [None]
